FAERS Safety Report 17797261 (Version 1)
Quarter: 2020Q2

REPORT INFORMATION
  Report Type: Spontaneous
  Country: US (occurrence: US)
  Receive Date: 20200515
  Receipt Date: 20200515
  Transmission Date: 20200714
  Serious: Yes (Life-Threatening)
  Sender: FDA-Public Use
  Company Number: None

PATIENT
  Age: 85 Year
  Sex: Male
  Weight: 88.6 kg

DRUGS (11)
  1. BACLOFEN 20MG [Concomitant]
     Active Substance: BACLOFEN
     Dates: start: 20200415, end: 20200424
  2. RIVAROXABAN 20MG [Concomitant]
     Active Substance: RIVAROXABAN
     Dates: start: 20200415, end: 20200424
  3. SENNA TAB 17.2MG [Concomitant]
     Dates: start: 20200415, end: 20200424
  4. AZITHROMYCIN 250 MG [Concomitant]
     Active Substance: AZITHROMYCIN ANHYDROUS
     Dates: start: 20200415, end: 20200417
  5. HYDROXYCHLOROQUINE SULFATE. [Suspect]
     Active Substance: HYDROXYCHLOROQUINE SULFATE
     Indication: COVID-19
     Dosage: ?          OTHER FREQUENCY:BID X 1DAY,THEN QD;?
     Route: 048
     Dates: start: 20200415, end: 20200417
  6. FAMOTIDINE 40MG [Concomitant]
     Active Substance: FAMOTIDINE
     Dates: start: 20200415, end: 20200424
  7. FINASTERIDE 5MG [Concomitant]
     Active Substance: FINASTERIDE
     Dates: start: 20200415, end: 20200424
  8. ACETAMINOPHEN 325 MG [Concomitant]
     Active Substance: ACETAMINOPHEN
     Dates: start: 20200415, end: 20200424
  9. DOXAZOCIN 6MG [Concomitant]
     Dates: start: 20200415, end: 20200424
  10. FUROSEMIDE 40MG [Concomitant]
     Active Substance: FUROSEMIDE
     Dates: start: 20200415, end: 20200424
  11. MILK OF MAGNESIA 30ML [Concomitant]
     Dates: start: 20200415, end: 20200424

REACTIONS (1)
  - Electrocardiogram QT prolonged [None]

NARRATIVE: CASE EVENT DATE: 20200417
